FAERS Safety Report 6917109-0 (Version None)
Quarter: 2010Q3

REPORT INFORMATION
  Report Type: 
  Country: None (occurrence: None)
  Receive Date: 20100810
  Receipt Date: 20100803
  Transmission Date: 20110219
  Serious: Yes (Other)
  Sender: FDA-Public Use
  Company Number: B0668383A

PATIENT
  Sex: Male

DRUGS (5)
  1. REQUIP XL [Suspect]
     Indication: PARKINSON'S DISEASE
     Dosage: 18MG PER DAY
     Route: 048
  2. L-DOPA [Concomitant]
  3. DILTIAZEM [Concomitant]
  4. RAMIPRIL [Concomitant]
  5. UNSPECIFIED DRUGS [Concomitant]

REACTIONS (3)
  - CARDIAC FAILURE CONGESTIVE [None]
  - LEFT VENTRICULAR FAILURE [None]
  - OEDEMA PERIPHERAL [None]
